FAERS Safety Report 14031736 (Version 1)
Quarter: 2017Q4

REPORT INFORMATION
  Report Type: Spontaneous
  Country: US (occurrence: US)
  Receive Date: 20171002
  Receipt Date: 20171002
  Transmission Date: 20180321
  Serious: No
  Sender: FDA-Public Use
  Company Number: US-BAYER-2017-188051

PATIENT

DRUGS (1)
  1. MIRALAX [Suspect]
     Active Substance: POLYETHYLENE GLYCOL 3350
     Indication: GASTROINTESTINAL DISORDER
     Dosage: UNK (3/4 OF A CAPFUL IN 4-8 OUNES OF WATER)
     Route: 048
     Dates: start: 201707, end: 20170929

REACTIONS (5)
  - Diarrhoea [Unknown]
  - Product use issue [Unknown]
  - Diarrhoea [Unknown]
  - Incorrect dosage administered [Unknown]
  - Diarrhoea [Unknown]

NARRATIVE: CASE EVENT DATE: 201707
